FAERS Safety Report 13354042 (Version 1)
Quarter: 2017Q1

REPORT INFORMATION
  Report Type: Spontaneous
  Country: US (occurrence: US)
  Receive Date: 20170320
  Receipt Date: 20170320
  Transmission Date: 20170429
  Serious: Yes (Other)
  Sender: FDA-Public Use
  Company Number: None

PATIENT
  Age: 54 Year
  Sex: Female
  Weight: 78.75 kg

DRUGS (1)
  1. HALOBETASOL [Suspect]
     Active Substance: HALOBETASOL PROPIONATE

REACTIONS (5)
  - Condition aggravated [None]
  - Drug ineffective [None]
  - Reaction to drug excipients [None]
  - Blister [None]
  - Scar [None]

NARRATIVE: CASE EVENT DATE: 20160321
